FAERS Safety Report 9107529 (Version 3)
Quarter: 2013Q2

REPORT INFORMATION
  Report Type: Spontaneous
  Country: JP (occurrence: JP)
  Receive Date: 20130221
  Receipt Date: 20130527
  Transmission Date: 20140414
  Serious: Yes (Hospitalization)
  Sender: FDA-Public Use
  Company Number: JP-009507513-1302JPN008430

PATIENT
  Age: 66 Year
  Sex: Female

DRUGS (4)
  1. PEGINTRON [Suspect]
     Indication: CHRONIC HEPATITIS C
     Dosage: 80 MICROGRAM, QW
     Route: 058
     Dates: start: 20120623, end: 20130105
  2. REBETOL [Suspect]
     Indication: CHRONIC HEPATITIS C
     Dosage: 3 DF, BID
     Route: 048
     Dates: start: 20120623, end: 20130105
  3. TELAVIC [Suspect]
     Indication: CHRONIC HEPATITIS C
     Dosage: 2250 MG, QD
     Route: 048
     Dates: start: 20120623, end: 20120819
  4. TELAVIC [Suspect]
     Dosage: UNK UNK, QD
     Route: 048
     Dates: start: 20120820, end: 20120914

REACTIONS (1)
  - Thrombotic thrombocytopenic purpura [Recovered/Resolved]
